FAERS Safety Report 21927325 (Version 1)
Quarter: 2023Q1

REPORT INFORMATION
  Report Type: Spontaneous
  Country: US (occurrence: None)
  Receive Date: 20230129
  Receipt Date: 20230129
  Transmission Date: 20230417
  Serious: Yes (Other)
  Sender: FDA-Public Use
  Company Number: None

PATIENT
  Age: 50 Year
  Sex: Female
  Weight: 51.75 kg

DRUGS (9)
  1. BOTOX [Suspect]
     Active Substance: ONABOTULINUMTOXINA
     Indication: Skin wrinkling
     Route: 058
     Dates: start: 20230112
  2. VITAMIN B12 [Concomitant]
     Active Substance: CYANOCOBALAMIN
  3. PYRIDOXINE HYDROCHLORIDE [Concomitant]
     Active Substance: PYRIDOXINE HYDROCHLORIDE
  4. C [Concomitant]
  5. D [Concomitant]
  6. FOLATE SODIUM [Concomitant]
     Active Substance: FOLATE SODIUM
  7. ZINC [Concomitant]
     Active Substance: ZINC
  8. POTASSIUM [Concomitant]
     Active Substance: POTASSIUM
  9. GARLIC [Concomitant]
     Active Substance: GARLIC

REACTIONS (16)
  - Injection site pain [None]
  - Feeling abnormal [None]
  - Headache [None]
  - Nausea [None]
  - Tension headache [None]
  - Dizziness [None]
  - Depressed level of consciousness [None]
  - Palpitations [None]
  - Dyspnoea [None]
  - Diarrhoea [None]
  - Constipation [None]
  - Abdominal distension [None]
  - Hypophagia [None]
  - Poor quality sleep [None]
  - Anxiety [None]
  - Loss of personal independence in daily activities [None]

NARRATIVE: CASE EVENT DATE: 20230113
